FAERS Safety Report 8943289 (Version 2)
Quarter: 2013Q1

REPORT INFORMATION
  Report Type: Spontaneous
  Country: TW (occurrence: TW)
  Receive Date: 20121204
  Receipt Date: 20130104
  Transmission Date: 20140127
  Serious: Yes (Life-Threatening, Hospitalization, Other)
  Sender: FDA-Public Use
  Company Number: TW-ELI_LILLY_AND_COMPANY-TW201211007080

PATIENT
  Age: 72 Year
  Sex: Female

DRUGS (1)
  1. TERIPARATIDE [Suspect]
     Indication: BLOOD GLUCOSE ABNORMAL
     Dosage: UNK UNK, UNKNOWN
     Route: 065
     Dates: start: 20121116

REACTIONS (6)
  - Altered state of consciousness [Unknown]
  - Pyrexia [Unknown]
  - Hyperglycaemia [Unknown]
  - Blood sodium increased [Unknown]
  - C-reactive protein increased [Unknown]
  - Off label use [Unknown]
